FAERS Safety Report 7392441-8 (Version None)
Quarter: 2011Q1

REPORT INFORMATION
  Report Type: 
  Country: None (occurrence: None)
  Receive Date: 20110330
  Receipt Date: 20110330
  Transmission Date: 20110831
  Serious: Yes (Hospitalization)
  Sender: FDA-Public Use
  Company Number: None

PATIENT
  Sex: Female
  Weight: 87.71 kg

DRUGS (3)
  1. CARBOPLATIN [Suspect]
     Dosage: 318 MG
     Dates: end: 20100922
  2. TAXOTERE [Suspect]
     Dosage: 116 MG
     Dates: end: 20100922
  3. TAXOL [Suspect]
     Dosage: 116 MG
     Dates: end: 20100929

REACTIONS (3)
  - LOSS OF CONSCIOUSNESS [None]
  - COMPLEX PARTIAL SEIZURES [None]
  - ASTHENIA [None]
